FAERS Safety Report 19911942 (Version 2)
Quarter: 2021Q4

REPORT INFORMATION
  Report Type: Spontaneous
  Country: IT (occurrence: IT)
  Receive Date: 20211004
  Receipt Date: 20211109
  Transmission Date: 20220303
  Serious: Yes (Hospitalization, Other)
  Sender: FDA-Public Use
  Company Number: IT-PHARMAMAR-2021PM000403

PATIENT
  Age: 74 Year
  Sex: Male
  Weight: 90 kg

DRUGS (19)
  1. XGEVA [Suspect]
     Active Substance: DENOSUMAB
     Indication: Bladder cancer
     Dosage: 120 MILLIGRAM
     Route: 065
     Dates: start: 20210810, end: 20210810
  2. LURBINECTEDIN [Suspect]
     Active Substance: LURBINECTEDIN
     Indication: Bladder cancer
     Dosage: 6.4 MILLIGRAM
     Route: 042
     Dates: start: 20210803, end: 20210824
  3. LANSOPRAZOLE [Concomitant]
     Active Substance: LANSOPRAZOLE
     Dosage: 30 MILLIGRAM, QD
  4. CITALOPRAM [Concomitant]
     Active Substance: CITALOPRAM HYDROBROMIDE
     Dosage: 20 MILLIGRAM, QD
  5. MYCOSTATIN [Concomitant]
     Active Substance: NYSTATIN
     Dosage: UNK UNK, QD
  6. NORVASC [Concomitant]
     Active Substance: AMLODIPINE BESYLATE
     Dosage: 10 MILLIGRAM, QD
  7. SENNA LEAVES [SENNA SPP.] [Concomitant]
     Dosage: 24 MILLIGRAM, Q12H
  8. LOYADA [Concomitant]
     Dosage: UNK UNK, QD
     Route: 047
  9. COLIREI [Concomitant]
     Dosage: 17.5 GRAM, QD
  10. BROTIZOLAM [Concomitant]
     Active Substance: BROTIZOLAM
     Dosage: 0.25 MILLIGRAM, QD
  11. DECADRON [Concomitant]
     Active Substance: DEXAMETHASONE
     Dosage: 8 MILLILITER, QD
  12. HALDOL [Concomitant]
     Active Substance: HALOPERIDOL
     Dosage: 5 DROP, QD
  13. BISOPROLOL [Concomitant]
     Active Substance: BISOPROLOL
     Dosage: 2.5 MILLIGRAM, QD
  14. POTASSION [POTASSIUM CHLORIDE] [Concomitant]
     Dosage: UNK UNK, QD
  15. CALCIUM CARBONATE [Concomitant]
     Active Substance: CALCIUM CARBONATE
     Dosage: 1 GRAM, QD
  16. VIRGANGEL [Concomitant]
     Dosage: UNK UNK, QD
  17. ARIXTRA [Concomitant]
     Active Substance: FONDAPARINUX SODIUM
     Dosage: 2.5 MILLIGRAM, QD
  18. ASPIRIN [Concomitant]
     Active Substance: ASPIRIN
     Dosage: 100 MILLIGRAM, QD
  19. DIFLUCAN [Concomitant]
     Active Substance: FLUCONAZOLE
     Dosage: 10 MG/ML 100MG/DAY

REACTIONS (1)
  - Transient ischaemic attack [Recovered/Resolved]

NARRATIVE: CASE EVENT DATE: 20210913
